FAERS Safety Report 5147838-3 (Version None)
Quarter: 2006Q3

REPORT INFORMATION
  Report Type: 
  Country: None (occurrence: None)
  Receive Date: 20060915
  Receipt Date: 20060801
  Transmission Date: 20061208
  Serious: No
  Sender: FDA-Public Use
  Company Number: 2006RL000291

PATIENT
  Age: 76 Year
  Sex: Female
  Weight: 97.5234 kg

DRUGS (3)
  1. OMACOR [Suspect]
     Indication: BLOOD TRIGLYCERIDES INCREASED
     Dosage: 2 GM;QD;PO
     Route: 048
  2. STATIN [Concomitant]
  3. FIBRATES [Concomitant]

REACTIONS (2)
  - LACRIMATION INCREASED [None]
  - THERAPEUTIC RESPONSE UNEXPECTED [None]
